FAERS Safety Report 21059503 (Version 3)
Quarter: 2022Q3

REPORT INFORMATION
  Report Type: Report from Study
  Country: AT (occurrence: AT)
  Receive Date: 20220708
  Receipt Date: 20220901
  Transmission Date: 20221027
  Serious: Yes (Other)
  Sender: FDA-Public Use
  Company Number: AT-GLAXOSMITHKLINE-AT2022GSK103529

PATIENT

DRUGS (4)
  1. BELANTAMAB MAFODOTIN [Suspect]
     Active Substance: BELANTAMAB MAFODOTIN
     Indication: Plasma cell myeloma refractory
     Dosage: 2.5 MG/KG
     Route: 042
     Dates: start: 20210826
  2. BELANTAMAB MAFODOTIN [Suspect]
     Active Substance: BELANTAMAB MAFODOTIN
     Indication: Plasma cell myeloma
     Dosage: 1.9 MG/KG (136,8 MG)
     Route: 042
  3. THEALOZ DUO EYE DROPS [Concomitant]
     Indication: Product used for unknown indication
     Dosage: UNK, 4-6 X PER DAY BOTH SIDES
  4. HYLO NIGHT EYE OINTMENT [Concomitant]
     Indication: Product used for unknown indication
     Dosage: UNK, EVENING BOTH SIDES

REACTIONS (12)
  - Corneal toxicity [Unknown]
  - Neurotoxicity [Unknown]
  - Toxicity to various agents [Unknown]
  - Keratopathy [Recovered/Resolved]
  - Optic neuropathy [Unknown]
  - Vision blurred [Unknown]
  - Hypoaesthesia eye [Unknown]
  - Punctate keratitis [Recovered/Resolved]
  - Corneal epithelial microcysts [Unknown]
  - Visual acuity reduced [Unknown]
  - Photophobia [Unknown]
  - Eye disorder [Unknown]

NARRATIVE: CASE EVENT DATE: 20210915
